FAERS Safety Report 21779292 (Version 1)
Quarter: 2022Q4

REPORT INFORMATION
  Report Type: Spontaneous
  Country: CM (occurrence: CM)
  Receive Date: 20221226
  Receipt Date: 20221226
  Transmission Date: 20230113
  Serious: Yes (Hospitalization, Other)
  Sender: FDA-Public Use
  Company Number: CM-BRISTOL-MYERS SQUIBB COMPANY-2022-155539

PATIENT
  Age: 70 Year

DRUGS (1)
  1. NIVOLUMAB [Suspect]
     Active Substance: NIVOLUMAB
     Indication: Melanoma recurrent

REACTIONS (2)
  - Immune-mediated hypophysitis [Unknown]
  - Sialoadenitis [Unknown]
